FAERS Safety Report 4738972-8 (Version None)
Quarter: 2005Q3

REPORT INFORMATION
  Report Type: 
  Country: None (occurrence: None)
  Receive Date: 20050801
  Receipt Date: 20050526
  Transmission Date: 20060218
  Serious: No
  Sender: FDA-Public Use
  Company Number: 214830

PATIENT
  Age: 58 Year
  Sex: Male
  Weight: 113.4 kg

DRUGS (7)
  1. RITUXAN [Suspect]
     Indication: LYMPHOMA
     Dosage: 900 MG, Q4W, INTRAVENOUS
     Route: 042
     Dates: start: 20040414
  2. ELFANEX (RESERPINE, POTASSIUM CHLORIDE, HYDROCHLOROTHIAZIDE, DIHYDRALA [Concomitant]
  3. WELLBUTRIN [Concomitant]
  4. LISINOPRIL [Concomitant]
  5. HYDROCHLOROTHIAZIDE [Concomitant]
  6. ATENOLOL [Concomitant]
  7. CLARITIN [Concomitant]

REACTIONS (1)
  - HEPATITIS B [None]
